FAERS Safety Report 6215173-8 (Version None)
Quarter: 2009Q2

REPORT INFORMATION
  Report Type: 
  Country: None (occurrence: None)
  Receive Date: 20090601
  Receipt Date: 20081031
  Transmission Date: 20091009
  Serious: Yes (Other)
  Sender: FDA-Public Use
  Company Number: 280884

PATIENT
  Age: 67 Year
  Sex: Female
  Weight: 66.2 kg

DRUGS (9)
  1. ACTIVELLA [Suspect]
     Indication: HORMONE THERAPY
     Dosage: ORAL
     Route: 048
     Dates: start: 20020101, end: 20030101
  2. PREMARIN [Suspect]
     Indication: HORMONE THERAPY
     Dosage: ORAL
     Route: 048
     Dates: start: 19950101, end: 19970101
  3. CYCRIN [Suspect]
     Indication: HORMONE THERAPY
     Dates: start: 19950101, end: 19970101
  4. PREMPRO [Suspect]
     Indication: HORMONE THERAPY
     Dosage: 2.5 MG, ORAL
     Route: 048
     Dates: start: 19970101, end: 20020101
  5. PROVERA [Suspect]
     Indication: HORMONE THERAPY
     Dosage: ORAL
     Route: 048
     Dates: start: 19830101, end: 19950101
  6. TRIAVIL (AMITRIPTYLINE HYDROCHLORIDE) [Concomitant]
  7. FOSAMAX (ALANDRONATE SODIUM) [Concomitant]
  8. CELEBREX [Concomitant]
  9. AMITRIPTYLINE HCL [Concomitant]

REACTIONS (1)
  - BREAST CANCER [None]
